FAERS Safety Report 9071764 (Version 1)
Quarter: 2013Q1

REPORT INFORMATION
  Report Type: Report from Study
  Country: US (occurrence: US)
  Receive Date: 20130129
  Receipt Date: 20130129
  Transmission Date: 20140127
  Serious: No
  Sender: FDA-Public Use
  Company Number: US-ABBOTT-12P-163-0926209-00

PATIENT
  Age: 43 Year
  Sex: Female

DRUGS (11)
  1. HUMIRA 40 MG/0.8 ML PEN [Suspect]
     Indication: ANKYLOSING SPONDYLITIS
     Dosage: INITIAL DOSE
     Dates: start: 20120408, end: 20120408
  2. HUMIRA 40 MG/0.8 ML PEN [Suspect]
  3. PRILOSEC [Concomitant]
     Indication: GASTROOESOPHAGEAL REFLUX DISEASE
  4. ZYRTEC [Concomitant]
     Indication: HYPERSENSITIVITY
  5. ALLERGY SHOTS [Concomitant]
     Indication: HYPERSENSITIVITY
     Dosage: MONTHLY
  6. EXCEDRIN MIGRAINE [Concomitant]
     Indication: HEADACHE
  7. MIRCETTE BIRTH CONTROL [Concomitant]
     Indication: PRODUCT USED FOR UNKNOWN INDICATION
     Dosage: DAILY
  8. VICODIN [Concomitant]
     Indication: PAIN
     Dosage: 5/500MG AS NEEDED
  9. VICODIN [Concomitant]
     Indication: JOINT INJURY
  10. VICODIN [Concomitant]
     Indication: ANKYLOSING SPONDYLITIS
  11. FLEXERIL [Concomitant]
     Indication: MYALGIA
     Dosage: 10MG AS NEEDED

REACTIONS (2)
  - Injection site pain [Recovered/Resolved]
  - Injection site haemorrhage [Recovered/Resolved]
